FAERS Safety Report 20923694 (Version 1)
Quarter: 2022Q2

REPORT INFORMATION
  Report Type: Spontaneous
  Country: AT (occurrence: AT)
  Receive Date: 20220607
  Receipt Date: 20220607
  Transmission Date: 20220721
  Serious: Yes (Other)
  Sender: FDA-Public Use
  Company Number: AT-Accord-264769

PATIENT
  Age: 54 Year
  Sex: Female

DRUGS (5)
  1. CARBOPLATIN [Suspect]
     Active Substance: CARBOPLATIN
     Indication: Malignant melanoma
  2. DACARBAZINE [Concomitant]
     Active Substance: DACARBAZINE
     Indication: Malignant melanoma
  3. ONDANSETRON [Concomitant]
     Active Substance: ONDANSETRON
  4. DEXAMETHASONE [Concomitant]
     Active Substance: DEXAMETHASONE
  5. MANNITOL [Concomitant]
     Active Substance: MANNITOL

REACTIONS (7)
  - Palmar-plantar erythrodysaesthesia syndrome [Recovered/Resolved]
  - Conjunctivitis [Recovered/Resolved]
  - Blood pressure decreased [Recovered/Resolved]
  - Paraesthesia [Recovered/Resolved]
  - Erythema [Recovered/Resolved]
  - Off label use [Unknown]
  - Type I hypersensitivity [Recovered/Resolved]
